FAERS Safety Report 17798665 (Version 2)
Quarter: 2020Q3

REPORT INFORMATION
  Report Type: Spontaneous
  Country: IT (occurrence: IT)
  Receive Date: 20200518
  Receipt Date: 20200721
  Transmission Date: 20201102
  Serious: Yes (Other)
  Sender: FDA-Public Use
  Company Number: IT-MYLANLABS-2020M1047784

PATIENT
  Age: 21 Year
  Sex: Male

DRUGS (1)
  1. KETOPROFEN. [Suspect]
     Active Substance: KETOPROFEN
     Indication: HEADACHE
     Dosage: 80 MILLIGRAM, TOTAL
     Route: 048
     Dates: start: 20190901, end: 20190901

REACTIONS (1)
  - Angioedema [Recovered/Resolved]

NARRATIVE: CASE EVENT DATE: 20190901
